FAERS Safety Report 6769086-3 (Version None)
Quarter: 2010Q2

REPORT INFORMATION
  Report Type: 
  Country: None (occurrence: None)
  Receive Date: 20100607
  Receipt Date: 20100525
  Transmission Date: 20101027
  Serious: Yes (Other)
  Sender: FDA-Public Use
  Company Number: 2010SP026531

PATIENT
  Age: 57 Year
  Sex: Female

DRUGS (9)
  1. CELESTONE [Suspect]
     Indication: OTITIS MEDIA
     Dosage: 4 MG; QAM; PO
     Route: 048
     Dates: start: 20100510
  2. TAVANIC [Concomitant]
  3. ACTISOUFRE [Concomitant]
  4. NIFLURIL [Concomitant]
  5. ANTIBIOTICS [Concomitant]
  6. CODEINE SUL TAB [Concomitant]
  7. LERCAN [Concomitant]
  8. APROVEL [Concomitant]
  9. SOLUPRED [Concomitant]

REACTIONS (5)
  - ADRENAL NEOPLASM [None]
  - ARTERIOSCLEROSIS [None]
  - HERNIA PAIN [None]
  - HYPERTENSION [None]
  - RENAL CYST [None]
